FAERS Safety Report 4610260-X (Version None)
Quarter: 2005Q1

REPORT INFORMATION
  Report Type: 
  Country: None (occurrence: None)
  Receive Date: 20050301
  Receipt Date: 20041105
  Transmission Date: 20050727
  Serious: No
  Sender: FDA-Public Use
  Company Number: WAES 0411USA00994

PATIENT
  Sex: Female

DRUGS (7)
  1. ZETIA [Suspect]
     Indication: BLOOD CHOLESTEROL INCREASED
     Dosage: 10 MG DAILY PO
     Route: 048
     Dates: start: 20040801, end: 20040101
  2. ACIPHEX [Concomitant]
  3. LIPITOR [Concomitant]
  4. SYNTHROID [Concomitant]
  5. TOPROL-XL [Concomitant]
  6. TYLENOL (CAPLET) [Concomitant]
  7. PREDNISONE [Concomitant]

REACTIONS (3)
  - MUSCLE TWITCHING [None]
  - RENAL IMPAIRMENT [None]
  - URINE ABNORMALITY [None]
